FAERS Safety Report 20486652 (Version 1)
Quarter: 2022Q1

REPORT INFORMATION
  Report Type: Spontaneous
  Country: US (occurrence: None)
  Receive Date: 20220217
  Receipt Date: 20220217
  Transmission Date: 20220423
  Serious: Yes (Other)
  Sender: FDA-Public Use
  Company Number: None

PATIENT
  Age: 77 Year
  Sex: Female
  Weight: 80.1 kg

DRUGS (1)
  1. YESCARTA [Suspect]
     Active Substance: AXICABTAGENE CILOLEUCEL
     Indication: Follicular lymphoma
     Dosage: OTHER FREQUENCY : ONCE;?
     Route: 041
     Dates: start: 20220118, end: 20220118

REACTIONS (9)
  - Hypotension [None]
  - Systemic lupus erythematosus [None]
  - Fatigue [None]
  - Dyspepsia [None]
  - Pyrexia [None]
  - Urinary retention [None]
  - Therapy interrupted [None]
  - Electroencephalogram abnormal [None]
  - Blood creatinine increased [None]

NARRATIVE: CASE EVENT DATE: 20220124
